FAERS Safety Report 12326456 (Version 2)
Quarter: 2016Q2

REPORT INFORMATION
  Report Type: Spontaneous
  Country: PL (occurrence: PL)
  Receive Date: 20160503
  Receipt Date: 20160509
  Transmission Date: 20160815
  Serious: Yes (Other)
  Sender: FDA-Public Use
  Company Number: PHHY2016PL059364

PATIENT
  Age: 59 Year
  Sex: Female
  Weight: 91 kg

DRUGS (1)
  1. VOTRIENT [Suspect]
     Active Substance: PAZOPANIB HYDROCHLORIDE
     Indication: RENAL CELL CARCINOMA
     Dosage: 800 MG, QD (ONE HOUR BEFORE MEALS OR TWO HOURS AFTER MEALS)
     Route: 048
     Dates: start: 201410

REACTIONS (6)
  - Blood pressure increased [Recovered/Resolved]
  - Ovarian cyst [Unknown]
  - Hepatic steatosis [Unknown]
  - Abdominal pain upper [Recovered/Resolved]
  - Polyneuropathy [Recovering/Resolving]
  - Pelvic cyst [Unknown]

NARRATIVE: CASE EVENT DATE: 201412
